FAERS Safety Report 6065153-0 (Version None)
Quarter: 2009Q1

REPORT INFORMATION
  Report Type: 
  Country: None (occurrence: None)
  Receive Date: 20090204
  Receipt Date: 20081231
  Transmission Date: 20090719
  Serious: No
  Sender: FDA-Public Use
  Company Number: US-BAYER-200910010BCC

PATIENT
  Age: 85 Year
  Sex: Female
  Weight: 69 kg

DRUGS (3)
  1. ALEVE [Suspect]
     Indication: BACK PAIN
     Dosage: TOTAL DAILY DOSE: 220 MG  UNIT DOSE: 220 MG
     Dates: end: 20081224
  2. BENADRYL [Concomitant]
  3. UNSPECIFIED HIGH BLOOD PRESSURE MEDICATION [Concomitant]

REACTIONS (2)
  - ORAL DISCOMFORT [None]
  - THROAT IRRITATION [None]
